FAERS Safety Report 25700307 (Version 1)
Quarter: 2025Q3

REPORT INFORMATION
  Report Type: Spontaneous
  Country: US (occurrence: None)
  Receive Date: 20250818
  Receipt Date: 20250818
  Transmission Date: 20251021
  Serious: Yes (Hospitalization)
  Sender: FDA-CTU
  Company Number: None

PATIENT
  Age: 56 Year
  Sex: Female
  Weight: 60.78 kg

DRUGS (4)
  1. ADCETRIS [Suspect]
     Active Substance: BRENTUXIMAB VEDOTIN
     Route: 042
  2. DOXORUBICIN [Suspect]
     Active Substance: DOXORUBICIN
  3. VINBLASTINE [Suspect]
     Active Substance: VINBLASTINE
  4. DACARBAZINE [Suspect]
     Active Substance: DACARBAZINE

REACTIONS (2)
  - Pneumonitis [None]
  - Oxygen saturation decreased [None]

NARRATIVE: CASE EVENT DATE: 20250729
